FAERS Safety Report 24662108 (Version 2)
Quarter: 2024Q4

REPORT INFORMATION
  Report Type: Report from Study
  Country: EG (occurrence: EG)
  Receive Date: 20241125
  Receipt Date: 20241211
  Transmission Date: 20250115
  Serious: Yes (Hospitalization)
  Sender: BIOGEN
  Company Number: EG-BIOGEN-2024BI01291257

PATIENT
  Age: 24 Year
  Sex: Female
  Weight: 60 kg

DRUGS (8)
  1. TYSABRI [Suspect]
     Active Substance: NATALIZUMAB
     Indication: Multiple sclerosis
     Dosage: 300MG/15ML
     Route: 050
     Dates: start: 2022
  2. GAPTIN [Concomitant]
     Indication: Product used for unknown indication
     Route: 050
  3. MULTIRELAX [Concomitant]
     Indication: Product used for unknown indication
     Route: 050
  4. PK-MERZ [Concomitant]
     Active Substance: AMANTADINE
     Indication: Product used for unknown indication
     Route: 050
  5. Feroglobin [Concomitant]
     Indication: Product used for unknown indication
     Route: 050
  6. CONTROLOC [Concomitant]
     Active Substance: PANTOPRAZOLE SODIUM
     Indication: Product used for unknown indication
     Route: 050
  7. BENFOTIAMINE\CYANOCOBALAMIN\PYRIDOXINE HYDROCHLORIDE [Concomitant]
     Active Substance: BENFOTIAMINE\CYANOCOBALAMIN\PYRIDOXINE HYDROCHLORIDE
     Indication: Product used for unknown indication
     Route: 050
  8. ESCITALOPRAM OXALATE [Concomitant]
     Active Substance: ESCITALOPRAM OXALATE
     Indication: Product used for unknown indication
     Route: 050

REACTIONS (2)
  - Multiple sclerosis relapse [Recovered/Resolved]
  - Depressed mood [Unknown]

NARRATIVE: CASE EVENT DATE: 20240701
